FAERS Safety Report 19080135 (Version 1)
Quarter: 2021Q1

REPORT INFORMATION
  Report Type: Other
  Country: FR (occurrence: FR)
  Receive Date: 20210331
  Receipt Date: 20210331
  Transmission Date: 20210420
  Serious: Yes (Hospitalization)
  Sender: FDA-Public Use
  Company Number: FR-VALIDUS PHARMACEUTICALS LLC-FR-2021VAL000802

PATIENT
  Age: 101 Year
  Sex: Female
  Weight: 44 kg

DRUGS (13)
  1. BISOPROLOL FUMARATE. [Suspect]
     Active Substance: BISOPROLOL FUMARATE
     Indication: HYPERTENSION
     Dosage: 1.25 MG, QD
     Route: 048
     Dates: start: 20181102
  2. OXAZEPAM. [Suspect]
     Active Substance: OXAZEPAM
     Indication: ANXIETY
     Dosage: 0?0?1/2 (10 MG)
     Route: 048
     Dates: start: 20181102, end: 20181206
  3. REFRESH CELLUVISC [Suspect]
     Active Substance: CARBOXYMETHYLCELLULOSE SODIUM
     Indication: LACRIMATION DECREASED
     Dosage: 1?1?1 DROP IN BOTH EYES
     Route: 047
     Dates: start: 20181102
  4. SODIUM CHLORIDE. [Suspect]
     Active Substance: SODIUM CHLORIDE
     Indication: HYPONATRAEMIA
     Dosage: 2000 MG, QD
     Route: 048
     Dates: start: 20181102
  5. BUDESONIDE. [Suspect]
     Active Substance: BUDESONIDE
     Indication: ASTHMA
     Dosage: 1?0?1 (1MG/2ML)
     Route: 055
     Dates: start: 20181102, end: 20181129
  6. OFLOCET                            /00731801/ [Suspect]
     Active Substance: OFLOXACIN
     Indication: RESPIRATORY TRACT INFECTION
     Dosage: 400 MG, QD
     Route: 048
     Dates: start: 20181122, end: 20181127
  7. VITAMINE D [Suspect]
     Active Substance: CHOLECALCIFEROL
     Indication: HYPOVITAMINOSIS
     Dosage: 1 DF, QD
     Route: 048
     Dates: start: 20181102
  8. CALCIUM [Suspect]
     Active Substance: CALCIUM
     Indication: HYPOVITAMINOSIS
     Dosage: 1 DF, QD
     Route: 048
     Dates: start: 20181102
  9. MACROGOL 4000 [Suspect]
     Active Substance: POLYETHYLENE GLYCOL 4000
     Indication: CONSTIPATION
     Dosage: 20 G, QD
     Route: 048
     Dates: start: 20181102
  10. FUROSEMIDE. [Suspect]
     Active Substance: FUROSEMIDE
     Indication: HYPERTENSION
     Dosage: 1/2?0?0 (40MG)
     Route: 048
     Dates: start: 20181102
  11. DIGOXIN. [Suspect]
     Active Substance: DIGOXIN
     Indication: CARDIAC FAILURE
     Dosage: 1/2?0?0 (0.25MG)
     Route: 048
     Dates: start: 20181102, end: 20181206
  12. KARDEGIC [Suspect]
     Active Substance: ASPIRIN DL-LYSINE
     Indication: THROMBOSIS PROPHYLAXIS
     Dosage: 75 MG, QD
     Route: 048
     Dates: start: 20181102
  13. SALBUTAMOL SULFATE W/THEOPHYLLINE [Suspect]
     Active Substance: ALBUTEROL\THEOPHYLLINE
     Indication: ASTHMA
     Dosage: 1?0?1 (2.5M/2.5ML)
     Route: 055
     Dates: start: 20181102, end: 20181129

REACTIONS (2)
  - Confusional state [Recovering/Resolving]
  - Hallucination [Recovering/Resolving]

NARRATIVE: CASE EVENT DATE: 20181123
